FAERS Safety Report 9519787 (Version 2)
Quarter: 2013Q3

REPORT INFORMATION
  Report Type: Spontaneous
  Country: IT (occurrence: IT)
  Receive Date: 20130912
  Receipt Date: 20130918
  Transmission Date: 20140515
  Serious: Yes (Hospitalization)
  Sender: FDA-Public Use
  Company Number: IT-TEVA-431367ISR

PATIENT
  Age: 52 Year
  Sex: Male
  Weight: 83 kg

DRUGS (5)
  1. FLUOROURACILE TEVA [Suspect]
     Indication: RECTAL CANCER
     Dosage: 2354 MILLIGRAM DAILY; 2354MG, CYCLICAL
     Route: 042
     Dates: start: 20120523, end: 20120606
  2. ELOXATIN [Suspect]
     Indication: RECTAL CANCER
     Dosage: 166 MILLIGRAM DAILY; 166 MG CYCLICAL. CONCENTRATE FOR SOLUTION FOR INFUSION
     Route: 042
     Dates: start: 20120523, end: 20120606
  3. LEVOFOLENE 175MG [Concomitant]
     Indication: RECTAL CANCER
     Dosage: 196 MILLIGRAM DAILY; POWDER FOR SOLUTION FOR INFUSION. DAILY DOSE: 196 MG
     Route: 042
     Dates: start: 20120523, end: 20120606
  4. TAD [Concomitant]
     Indication: RECTAL CANCER
     Dosage: 2138 MILLIGRAM DAILY; POWDER AND SOLVENT FOR SOLUTION FOR INFUSION. DAILY DOSE: 2138 MG
     Route: 042
     Dates: start: 20120523, end: 20120606
  5. OMEPRAZOLO [Concomitant]
     Indication: GASTROOESOPHAGEAL REFLUX DISEASE
     Dosage: 20 MILLIGRAM DAILY;
     Route: 048
     Dates: start: 20120511

REACTIONS (1)
  - Febrile neutropenia [Recovered/Resolved]
